FAERS Safety Report 9637419 (Version 1)
Quarter: 2013Q4

REPORT INFORMATION
  Report Type: Spontaneous
  Country: GB (occurrence: GB)
  Receive Date: 20131022
  Receipt Date: 20131022
  Transmission Date: 20140711
  Serious: Yes (Death, Other)
  Sender: FDA-Public Use
  Company Number: GB-ASTELLAS-2013EU009035

PATIENT
  Age: 18 Year
  Sex: Female

DRUGS (2)
  1. MYCAMINE [Suspect]
     Indication: CANDIDA INFECTION
     Dosage: UNK
     Route: 065
     Dates: start: 2013
  2. MYCAMINE [Suspect]
     Indication: CANDIDA INFECTION

REACTIONS (1)
  - Respiratory failure [Fatal]
